FAERS Safety Report 9407976 (Version 2)
Quarter: 2013Q2

REPORT INFORMATION
  Report Type: Spontaneous
  Country: CH (occurrence: None)
  Receive Date: 20130325
  Receipt Date: 20130610
  Transmission Date: 20140414
  Serious: Yes (Other)
  Sender: FDA-Public Use
  Company Number: 2013-SE-0005

PATIENT
  Age: 74 Year
  Sex: Female

DRUGS (4)
  1. FARESTON [Suspect]
     Indication: OSTEOPOROSIS
     Dates: start: 2012, end: 2012
  2. TAMOXIFEN [Suspect]
     Indication: OSTEOPOROSIS
     Dates: start: 2012, end: 2012
  3. LETROZOLE [Suspect]
     Indication: PRODUCT USED FOR UNKNOWN INDICATION
     Dates: start: 2012, end: 2012
  4. IPREN [Suspect]
     Indication: MORTON^S NEURALGIA
     Dates: start: 2012, end: 20130103

REACTIONS (2)
  - Angioedema [None]
  - Lip swelling [None]
